FAERS Safety Report 7442533-X (Version None)
Quarter: 2011Q2

REPORT INFORMATION
  Report Type: 
  Country: None (occurrence: None)
  Receive Date: 20110428
  Receipt Date: 20110420
  Transmission Date: 20111010
  Serious: Yes (Hospitalization, Other)
  Sender: FDA-Public Use
  Company Number: US-ALEXION-A201100163

PATIENT
  Sex: Female

DRUGS (20)
  1. SOLIRIS [Suspect]
     Dosage: 900 MG, Q2W
     Route: 042
     Dates: start: 20100701
  2. CLARITIN                           /00917501/ [Concomitant]
  3. VICODIN [Concomitant]
  4. FISH OIL [Concomitant]
  5. DRISDOL [Concomitant]
  6. SOLIRIS [Suspect]
     Indication: PAROXYSMAL NOCTURNAL HAEMOGLOBINURIA
     Dosage: 600 MG, QW
     Route: 042
     Dates: start: 20100603
  7. VITAMIN E                          /00110501/ [Concomitant]
  8. BENTYL [Concomitant]
     Dosage: UNK
     Route: 048
  9. KLONOPIN [Concomitant]
     Dosage: UNK
     Route: 048
  10. SYNTHROID [Concomitant]
     Dosage: UNK
     Route: 048
  11. FOLIC ACID [Concomitant]
     Dosage: UNK
     Route: 048
  12. COLAZAL [Concomitant]
  13. NEURONTIN [Concomitant]
  14. ESTRACE [Concomitant]
     Dosage: UNK
     Route: 048
  15. PREMARIN [Concomitant]
     Dosage: UNK
  16. ATIVAN [Concomitant]
  17. PRISTIQ [Concomitant]
  18. VALTREX [Concomitant]
  19. VITAMIN B12                        /00056201/ [Concomitant]
  20. ESTRIN [Concomitant]

REACTIONS (4)
  - BLADDER PROLAPSE [None]
  - DIARRHOEA [None]
  - INTESTINAL RESECTION [None]
  - CYSTITIS [None]
